FAERS Safety Report 10047598 (Version 1)
Quarter: 2014Q1

REPORT INFORMATION
  Report Type: Spontaneous
  Country: US (occurrence: US)
  Receive Date: 20140331
  Receipt Date: 20140331
  Transmission Date: 20141002
  Serious: No
  Sender: FDA-Public Use
  Company Number: US-009507513-1403USA011426

PATIENT
  Age: 22 Year
  Sex: Female
  Weight: 77.55 kg

DRUGS (1)
  1. IMPLANON [Suspect]
     Indication: CONTRACEPTION
     Dosage: 1 ROD FOR 3 YEARS
     Route: 059
     Dates: start: 20120507

REACTIONS (2)
  - Amenorrhoea [Recovered/Resolved]
  - Menorrhagia [Unknown]
